FAERS Safety Report 7879818-9 (Version None)
Quarter: 2011Q4

REPORT INFORMATION
  Report Type: 
  Country: None (occurrence: None)
  Receive Date: 20111101
  Receipt Date: 20111025
  Transmission Date: 20120403
  Serious: Yes (Hospitalization, Other)
  Sender: FDA-Public Use
  Company Number: US-ABBOTT-11P-163-0857092-00

PATIENT
  Sex: Female
  Weight: 72.64 kg

DRUGS (2)
  1. HUMIRA [Suspect]
     Indication: COLITIS ULCERATIVE
     Dates: start: 20100501, end: 20110824
  2. HUMIRA [Suspect]
     Indication: INFLAMMATORY BOWEL DISEASE

REACTIONS (7)
  - COLITIS ULCERATIVE [None]
  - FREQUENT BOWEL MOVEMENTS [None]
  - INFLAMMATORY BOWEL DISEASE [None]
  - MUCOUS STOOLS [None]
  - DRUG INEFFECTIVE [None]
  - HAEMATOCHEZIA [None]
  - DIARRHOEA [None]
